FAERS Safety Report 23661519 (Version 3)
Quarter: 2024Q4

REPORT INFORMATION
  Report Type: Spontaneous
  Country: NL (occurrence: NL)
  Receive Date: 20240322
  Receipt Date: 20241212
  Transmission Date: 20250115
  Serious: Yes (Hospitalization)
  Sender: AMGEN
  Company Number: NL-ROCHE-3517686

PATIENT
  Age: 63 Year
  Sex: Male

DRUGS (4)
  1. MVASI [Suspect]
     Active Substance: BEVACIZUMAB-AWWB
     Indication: Neoplasm
     Dosage: 1482 MILLIGRAM, Q3WK, MOST RECENT DOSE ON 12/DEC/2023
     Route: 042
     Dates: start: 20230921
  2. ATEZOLIZUMAB [Suspect]
     Active Substance: ATEZOLIZUMAB
     Indication: Neoplasm
     Dosage: 1200 MILLIGRAM, Q3WK, MOST RECENT DOSE ON 16/JAN/2024
     Route: 040
     Dates: start: 20230921
  3. ACETAMINOPHEN [Concomitant]
     Active Substance: ACETAMINOPHEN
     Dosage: 1000 MILLIGRAM, QD
     Dates: start: 202312
  4. OXYCODONE [Concomitant]
     Active Substance: OXYCODONE
     Dosage: 10 MILLIGRAM, QD
     Dates: start: 202312

REACTIONS (2)
  - Enterocutaneous fistula [Recovering/Resolving]
  - Abscess [Recovering/Resolving]

NARRATIVE: CASE EVENT DATE: 20240224
